FAERS Safety Report 18310035 (Version 2)
Quarter: 2022Q1

REPORT INFORMATION
  Report Type: Spontaneous
  Country: US (occurrence: US)
  Receive Date: 20200924
  Receipt Date: 20220207
  Transmission Date: 20220423
  Serious: Yes (Other)
  Sender: FDA-Public Use
  Company Number: US-PFIZER INC-2020366989

PATIENT
  Age: 78 Year
  Sex: Female

DRUGS (1)
  1. XELJANZ [Suspect]
     Active Substance: TOFACITINIB CITRATE
     Dosage: 5 MG

REACTIONS (8)
  - Immunodeficiency [Unknown]
  - Dysphonia [Unknown]
  - Pain [Unknown]
  - Drug hypersensitivity [Unknown]
  - Dysphonia [Unknown]
  - Peripheral swelling [Unknown]
  - Pain in extremity [Unknown]
  - COVID-19 [Unknown]
